FAERS Safety Report 8260923-2 (Version None)
Quarter: 2012Q2

REPORT INFORMATION
  Report Type: 
  Country: None (occurrence: None)
  Receive Date: 20120405
  Receipt Date: 20120328
  Transmission Date: 20120825
  Serious: Yes (Other)
  Sender: FDA-Public Use
  Company Number: US-PFIZER INC-2012080121

PATIENT
  Sex: Female
  Weight: 77.098 kg

DRUGS (8)
  1. ASPIRIN [Concomitant]
     Indication: HEADACHE
     Dosage: 500 MG, AS NEEDED
  2. CALCIUM [Concomitant]
     Dosage: UNK
  3. BENICAR [Concomitant]
     Indication: HYPERTENSION
     Dosage: 50 MG, DAILY
  4. LIPITOR [Concomitant]
     Indication: BLOOD CHOLESTEROL INCREASED
     Dosage: 40 MG, DAILY
     Route: 048
  5. VITAMIN B-12 [Concomitant]
     Dosage: UNK
  6. CELEBREX [Suspect]
     Indication: PAIN IN EXTREMITY
     Dosage: UNK
     Dates: start: 20090101, end: 20090101
  7. VITAMIN D [Concomitant]
     Dosage: UNK
  8. METFORMIN [Concomitant]
     Indication: DIABETES MELLITUS
     Dosage: 500 MG, 2X/DAY

REACTIONS (3)
  - PAIN IN EXTREMITY [None]
  - SOMNOLENCE [None]
  - DRUG INEFFECTIVE [None]
